FAERS Safety Report 7158790-3 (Version None)
Quarter: 2010Q4

REPORT INFORMATION
  Report Type: 
  Country: None (occurrence: None)
  Receive Date: 20101214
  Receipt Date: 20100630
  Transmission Date: 20110411
  Serious: No
  Sender: FDA-Public Use
  Company Number: US-ASTRAZENECA-2010SE30560

PATIENT
  Age: 65 Year
  Sex: Male
  Weight: 181.4 kg

DRUGS (1)
  1. CRESTOR [Suspect]
     Route: 048

REACTIONS (3)
  - BACK PAIN [None]
  - DRUG DOSE OMISSION [None]
  - PAIN IN EXTREMITY [None]
